FAERS Safety Report 9148655 (Version 1)
Quarter: 2013Q1

REPORT INFORMATION
  Report Type: Spontaneous
  Country: AU (occurrence: None)
  Receive Date: 20130305
  Receipt Date: 20130305
  Transmission Date: 20140127
  Serious: Yes (Death)
  Sender: FDA-Public Use
  Company Number: DSU-2013-01573

PATIENT
  Age: 83 Year
  Sex: Male

DRUGS (11)
  1. OLMETEC [Suspect]
     Indication: PRODUCT USED FOR UNKNOWN INDICATION
     Route: 048
  2. DITHIAZIDE [Suspect]
     Indication: PRODUCT USED FOR UNKNOWN INDICATION
  3. FLOMAXTRA [Suspect]
     Indication: PRODUCT USED FOR UNKNOWN INDICATION
  4. LASIX [Suspect]
     Indication: PRODUCT USED FOR UNKNOWN INDICATION
  5. MEGAFOL [Suspect]
     Indication: PRODUCT USED FOR UNKNOWN INDICATION
  6. NEXIUM [Suspect]
     Indication: PRODUCT USED FOR UNKNOWN INDICATION
  7. OROXINE [Suspect]
     Indication: PRODUCT USED FOR UNKNOWN INDICATION
  8. PRADAXA [Suspect]
     Indication: PRODUCT USED FOR UNKNOWN INDICATION
  9. SERETIDE [Suspect]
     Indication: PRODUCT USED FOR UNKNOWN INDICATION
  10. SPIRIVA [Suspect]
     Indication: PRODUCT USED FOR UNKNOWN INDICATION
  11. ZYLOPRIM [Suspect]
     Indication: PRODUCT USED FOR UNKNOWN INDICATION

REACTIONS (1)
  - Cardiac failure [None]
